FAERS Safety Report 5570440-6 (Version None)
Quarter: 2007Q4

REPORT INFORMATION
  Report Type: 
  Country: None (occurrence: None)
  Receive Date: 20071221
  Receipt Date: 20071210
  Transmission Date: 20080405
  Serious: Yes (Hospitalization, Disabling)
  Sender: FDA-Public Use
  Company Number: FR-JNJFOC-20071203194

PATIENT
  Age: 16 Year
  Sex: Male

DRUGS (2)
  1. REMICADE [Suspect]
     Route: 042
  2. REMICADE [Suspect]
     Indication: CROHN'S DISEASE
     Route: 042

REACTIONS (4)
  - BRONCHOSPASM [None]
  - DYSPNOEA [None]
  - INFUSION RELATED REACTION [None]
  - RASH [None]
